FAERS Safety Report 24326761 (Version 2)
Quarter: 2024Q4

REPORT INFORMATION
  Report Type: Spontaneous
  Country: BR (occurrence: BR)
  Receive Date: 20240917
  Receipt Date: 20241004
  Transmission Date: 20250114
  Serious: Yes (Hospitalization)
  Sender: CELLTRION
  Company Number: BR-CELLTRION INC.-2024BR021122

PATIENT

DRUGS (5)
  1. INFLIXIMAB [Suspect]
     Active Substance: INFLIXIMAB
     Indication: Crohn^s disease
     Dosage: 3 AMPOULES EVERY 8 WEEKS
     Route: 042
     Dates: start: 20221212
  2. INFLIXIMAB [Suspect]
     Active Substance: INFLIXIMAB
     Dosage: 3 AMPOULES OF 100MG EACH (300 MG TOTAL) EVERY 8 WEEKS
     Route: 042
     Dates: start: 20240902
  3. FOLIC ACID [Concomitant]
     Active Substance: FOLIC ACID
     Indication: Crohn^s disease
     Dosage: 1 PILL A WEEK ABOUT 1 YEAR
     Route: 048
  4. METHOTREXATE [Concomitant]
     Active Substance: METHOTREXATE
     Indication: Crohn^s disease
     Dosage: 2 PILLS A WEEK OVER 1 YEAR
     Route: 048
  5. VITAMIN D NOS [Concomitant]
     Active Substance: CHOLECALCIFEROL\ERGOCALCIFEROL
     Indication: Supplementation therapy
     Dosage: 1 DROP A DAY ABOUT 1 YEAR
     Route: 048

REACTIONS (4)
  - Colonoscopy [Unknown]
  - Drain removal [Unknown]
  - Weight increased [Not Recovered/Not Resolved]
  - Anxiety [Not Recovered/Not Resolved]

NARRATIVE: CASE EVENT DATE: 20240904
